FAERS Safety Report 5390445-8 (Version None)
Quarter: 2007Q3

REPORT INFORMATION
  Report Type: 
  Country: None (occurrence: None)
  Receive Date: 20070718
  Receipt Date: 20070207
  Transmission Date: 20080115
  Serious: No
  Sender: FDA-Public Use
  Company Number: US-KINGPHARMUSA00001-K200700157

PATIENT

DRUGS (2)
  1. LEVOXYL [Suspect]
     Dosage: 50 MCG, QD
     Route: 048
     Dates: start: 20070131, end: 20070131
  2. LEVOXYL [Suspect]
     Dosage: 25 MCG,QD
     Route: 048
     Dates: start: 20070201, end: 20070201

REACTIONS (3)
  - HEADACHE [None]
  - INSOMNIA [None]
  - TREMOR [None]
